FAERS Safety Report 6216735-4 (Version None)
Quarter: 2009Q2

REPORT INFORMATION
  Report Type: 
  Country: None (occurrence: None)
  Receive Date: 20090605
  Receipt Date: 20090526
  Transmission Date: 20091009
  Serious: Yes (Hospitalization)
  Sender: FDA-Public Use
  Company Number: PHHY2009JP18346

PATIENT
  Age: 60 Year
  Sex: Female

DRUGS (5)
  1. MIKELAN LA 2% (NVO) [Suspect]
     Indication: GLAUCOMA
     Dosage: 1 GTT, QD
     Route: 047
     Dates: start: 20080401, end: 20090429
  2. TRUSOPT [Concomitant]
     Dosage: 1 %, UNK
     Route: 047
  3. FLUMETHOLON [Concomitant]
     Dosage: 0.1 %, UNK
     Route: 047
  4. ATELEC [Concomitant]
     Dosage: 10 MG, UNK
     Route: 048
  5. LIPITOR [Concomitant]
     Dosage: 5 MG, UNK
     Route: 048

REACTIONS (4)
  - ATRIOVENTRICULAR BLOCK [None]
  - BRADYCARDIA [None]
  - GAIT DISTURBANCE [None]
  - MALAISE [None]
